FAERS Safety Report 8733723 (Version 3)
Quarter: 2013Q1

REPORT INFORMATION
  Report Type: Spontaneous
  Country: US (occurrence: US)
  Receive Date: 20120821
  Receipt Date: 20130114
  Transmission Date: 20140127
  Serious: Yes (Other)
  Sender: FDA-Public Use
  Company Number: US-BAYER-2012-083853

PATIENT
  Age: 23 Year
  Sex: Female
  Weight: 65.76 kg

DRUGS (8)
  1. OCELLA [Suspect]
     Dosage: UNK
     Dates: start: 200906, end: 20090803
  2. YASMIN [Suspect]
     Dosage: UNK
     Dates: start: 200906, end: 20090803
  3. GARDASIL [Concomitant]
     Dosage: UNK
     Dates: start: 20090629
  4. VITAMIN D [Concomitant]
     Dosage: 2000 U, UNK
     Dates: start: 20090629
  5. MULTIVITAMIN [Concomitant]
     Indication: GENERAL PHYSICAL HEALTH DETERIORATION
     Dosage: ONCE DAILY OR AS RECOMMENDED ON THE BOTTLE
     Dates: start: 200907, end: 200908
  6. CELEXA [Concomitant]
     Indication: DEPRESSION
     Dosage: 20 MG, UNK
     Dates: start: 200812, end: 200905
  7. ERGOCALCIFEROL [Concomitant]
     Dosage: 5000 U, UNK
     Dates: start: 20090803
  8. DESOGEN [DESOGESTREL,ETHINYLESTRADIOL] [Concomitant]

REACTIONS (7)
  - Pain [Recovering/Resolving]
  - Lacunar infarction [Recovering/Resolving]
  - Emotional distress [None]
  - Pain [None]
  - General physical health deterioration [Recovering/Resolving]
  - Injury [Recovering/Resolving]
  - Anxiety [None]
